FAERS Safety Report 12779779 (Version 1)
Quarter: 2016Q3

REPORT INFORMATION
  Report Type: Spontaneous
  Country: US (occurrence: US)
  Receive Date: 20160924
  Receipt Date: 20160924
  Transmission Date: 20161109
  Serious: Yes (Disabling, Other)
  Sender: FDA-Public Use
  Company Number: None

PATIENT
  Age: 71 Year
  Sex: Female
  Weight: 72 kg

DRUGS (14)
  1. ATORVASTATIN [Concomitant]
     Active Substance: ATORVASTATIN
  2. LEVOCITRIZINE [Concomitant]
  3. METFORMIN [Concomitant]
     Active Substance: METFORMIN HYDROCHLORIDE
  4. FOSINOPRIL [Concomitant]
     Active Substance: FOSINOPRIL
  5. SPIRIVA INHALER [Concomitant]
  6. MULTI [Concomitant]
  7. CALCIUM [Concomitant]
     Active Substance: CALCIUM
  8. VITAMIN D3 [Concomitant]
     Active Substance: CHOLECALCIFEROL
  9. PROLIA [Suspect]
     Active Substance: DENOSUMAB
     Indication: OSTEOPOROSIS
     Route: 030
     Dates: start: 20131015, end: 20140415
  10. LIOTHYRONINE [Concomitant]
     Active Substance: LIOTHYRONINE
  11. VALTREX [Concomitant]
     Active Substance: VALACYCLOVIR HYDROCHLORIDE
  12. ISOSORBIDE. [Concomitant]
     Active Substance: ISOSORBIDE
  13. INVOKANA [Concomitant]
     Active Substance: CANAGLIFLOZIN
  14. MONTELUKAST [Concomitant]
     Active Substance: MONTELUKAST SODIUM

REACTIONS (12)
  - Pyrexia [None]
  - Feeling cold [None]
  - Arthralgia [None]
  - Pain in extremity [None]
  - Erythema [None]
  - Hypersomnia [None]
  - Skin burning sensation [None]
  - Chills [None]
  - Headache [None]
  - Thermal burn [None]
  - Tremor [None]
  - Pruritus [None]
